FAERS Safety Report 24298133 (Version 2)
Quarter: 2024Q4

REPORT INFORMATION
  Report Type: Report from Study
  Country: DE (occurrence: DE)
  Receive Date: 20240909
  Receipt Date: 20241202
  Transmission Date: 20250115
  Serious: Yes (Other)
  Sender: MYLAN
  Company Number: DE-NAPPMUNDI-GBR-2024-0118829

PATIENT
  Age: 36 Year
  Sex: Male

DRUGS (2)
  1. QUETIAPINE [Suspect]
     Active Substance: QUETIAPINE
     Indication: Drug abuse
     Dosage: UNK
     Route: 048
  2. BUPRENORPHINE [Suspect]
     Active Substance: BUPRENORPHINE
     Indication: Drug abuse
     Dosage: UNK
     Route: 048

REACTIONS (2)
  - Drug abuse [Unknown]
  - Aggression [Unknown]
